FAERS Safety Report 25335206 (Version 2)
Quarter: 2025Q2

REPORT INFORMATION
  Report Type: Report from Study
  Country: US (occurrence: US)
  Receive Date: 20250520
  Receipt Date: 20250523
  Transmission Date: 20250717
  Serious: No
  Sender: BRISTOL-MYERS SQUIBB COMPANY
  Company Number: US-BRISTOL-MYERS SQUIBB COMPANY-2025-072493

PATIENT
  Age: 73 Year
  Sex: Female
  Weight: 58.97 kg

DRUGS (2)
  1. ORENCIA [Suspect]
     Active Substance: ABATACEPT
     Indication: Rheumatoid arthritis
     Route: 042
     Dates: start: 20250513
  2. ORENCIA [Suspect]
     Active Substance: ABATACEPT
     Route: 058
     Dates: start: 20250513

REACTIONS (6)
  - Injection site haemorrhage [Unknown]
  - Arthralgia [Unknown]
  - Injection site pain [Unknown]
  - Contusion [Unknown]
  - Insomnia [Unknown]
  - Injection site irritation [Unknown]

NARRATIVE: CASE EVENT DATE: 20250514
